FAERS Safety Report 4916785-1 (Version None)
Quarter: 2006Q1

REPORT INFORMATION
  Report Type: 
  Country: None (occurrence: None)
  Receive Date: 20060220
  Receipt Date: 20041019
  Transmission Date: 20060701
  Serious: Yes (Hospitalization, Disabling)
  Sender: FDA-Public Use
  Company Number: US-ROCHE-383710

PATIENT
  Age: 30 Year
  Sex: Male

DRUGS (1)
  1. ACCUTANE [Suspect]
     Indication: ACNE
     Dosage: DOSING REGIMEN: VARIES.
     Route: 048
     Dates: start: 20020402, end: 20020615

REACTIONS (44)
  - ABDOMINAL PAIN [None]
  - ABDOMINAL PAIN UPPER [None]
  - ANXIETY [None]
  - APPENDICITIS [None]
  - BACTERIA STOOL IDENTIFIED [None]
  - BRONCHITIS [None]
  - CHOLECYSTITIS [None]
  - CLOSTRIDIAL INFECTION [None]
  - COLITIS [None]
  - COLITIS ULCERATIVE [None]
  - DIARRHOEA [None]
  - DUODENITIS [None]
  - DYSPEPSIA [None]
  - DYSPNOEA [None]
  - EAR DISORDER [None]
  - EPISTAXIS [None]
  - ERYTHEMA [None]
  - FAECALITH [None]
  - FLATULENCE [None]
  - GASTRIC DISORDER [None]
  - GASTROENTERITIS VIRAL [None]
  - GASTROINTESTINAL DISORDER [None]
  - GASTROOESOPHAGEAL REFLUX DISEASE [None]
  - HAEMATOCHEZIA [None]
  - HEADACHE [None]
  - HIATUS HERNIA [None]
  - ILEUS [None]
  - INFLAMMATORY BOWEL DISEASE [None]
  - INJURY [None]
  - INSOMNIA [None]
  - INTESTINAL HAEMORRHAGE [None]
  - NASAL DISORDER [None]
  - NAUSEA [None]
  - OESOPHAGITIS [None]
  - OTITIS MEDIA [None]
  - PAIN [None]
  - POSTNASAL DRIP [None]
  - RECTAL HAEMORRHAGE [None]
  - RED BLOOD CELL COUNT DECREASED [None]
  - RESPIRATORY DISORDER [None]
  - SEROSITIS [None]
  - SINUSITIS [None]
  - UMBILICAL HERNIA [None]
  - VOMITING [None]
